FAERS Safety Report 5884418-6 (Version None)
Quarter: 2008Q3

REPORT INFORMATION
  Report Type: 
  Country: None (occurrence: None)
  Receive Date: 20080915
  Receipt Date: 20080904
  Transmission Date: 20090109
  Serious: Yes (Other)
  Sender: FDA-Public Use
  Company Number: ES-PFIZER INC-2008073875

PATIENT
  Age: 68 Year
  Sex: Male

DRUGS (6)
  1. ALDACTONE [Suspect]
     Route: 048
     Dates: start: 20060101
  2. DEXAMETHASONE [Interacting]
     Indication: MULTIPLE MYELOMA
     Dosage: DAILY DOSE:10MG
     Dates: start: 20060101
  3. REVLIMID [Interacting]
     Indication: MULTIPLE MYELOMA
     Route: 048
     Dates: start: 20061121, end: 20070620
  4. SUTRIL [Interacting]
     Route: 048
     Dates: start: 20060101
  5. ASPIRIN [Concomitant]
  6. CHLORTHALIDONE [Concomitant]

REACTIONS (4)
  - DRUG INTERACTION [None]
  - MUSCLE SPASMS [None]
  - NEUROPATHY PERIPHERAL [None]
  - PARAESTHESIA [None]
